FAERS Safety Report 24369403 (Version 1)
Quarter: 2024Q3

REPORT INFORMATION
  Report Type: Report from Study
  Country: US (occurrence: US)
  Receive Date: 20240927
  Receipt Date: 20240927
  Transmission Date: 20241017
  Serious: No
  Sender: ROCHE
  Company Number: US-ROCHE-3424886

PATIENT
  Age: 56 Year
  Sex: Female

DRUGS (5)
  1. LUCENTIS [Suspect]
     Active Substance: RANIBIZUMAB
     Indication: Type 1 diabetes mellitus
     Dosage: STRENGTH : 0.5MG/0.05ML,  INJECT 0.3 MG VIA INTRAVITREAL ADMINISTRATION INTO EACH EYE EVERY 4 WEEKS.
     Route: 050
  2. LUCENTIS [Suspect]
     Active Substance: RANIBIZUMAB
     Indication: Macular oedema
  3. LUCENTIS [Suspect]
     Active Substance: RANIBIZUMAB
     Indication: Diabetic retinopathy
  4. NOVOLIN NOS [Concomitant]
     Active Substance: INSULIN HUMAN
  5. CARTIA (UNITED STATES) [Concomitant]

REACTIONS (2)
  - Off label use [Unknown]
  - No adverse event [Unknown]
